APPROVED DRUG PRODUCT: ROMVIMZA
Active Ingredient: VIMSELTINIB
Strength: 14MG
Dosage Form/Route: CAPSULE;ORAL
Application: N219304 | Product #001
Applicant: DECIPHERA PHARMACEUTICALS LLC
Approved: Feb 14, 2025 | RLD: Yes | RS: No | Type: RX

PATENTS:
Patent 11679110 | Expires: Feb 3, 2040
Patent 11103507 | Expires: Feb 3, 2040
Patent 12285430 | Expires: Dec 23, 2039
Patent 12485120 | Expires: Dec 23, 2039
Patent 12509443 | Expires: Apr 30, 2045
Patent 12528787 | Expires: Dec 6, 2044
Patent 12447149 | Expires: Dec 6, 2044
Patent 9181223 | Expires: Mar 14, 2034

EXCLUSIVITY:
Code: NCE | Date: Feb 14, 2030